FAERS Safety Report 6507127-9 (Version None)
Quarter: 2009Q4

REPORT INFORMATION
  Report Type: 
  Country: None (occurrence: None)
  Receive Date: 20091221
  Receipt Date: 20091209
  Transmission Date: 20100525
  Serious: Yes (Hospitalization, Other)
  Sender: FDA-Public Use
  Company Number: PHMT2007CA01729

PATIENT
  Sex: Female

DRUGS (6)
  1. SANDOSTATIN LAR [Suspect]
     Indication: NEUROENDOCRINE TUMOUR
     Dosage: 40 MG, TIW
     Route: 030
     Dates: start: 20000701
  2. SANDOSTATIN LAR [Suspect]
     Dosage: 40 MG, TIW
     Route: 030
  3. CHOLESTYRAMINE RESIN [Concomitant]
  4. PARIET [Concomitant]
  5. SERTRALINE HCL [Concomitant]
  6. NADOLOL [Concomitant]

REACTIONS (16)
  - ABDOMINAL PAIN [None]
  - ABDOMINAL PAIN UPPER [None]
  - ASTHENIA [None]
  - BIOPSY THYROID GLAND [None]
  - CONSTIPATION [None]
  - DEPRESSION [None]
  - DIARRHOEA [None]
  - FATIGUE [None]
  - HEPATIC NEOPLASM [None]
  - LIVER OPERATION [None]
  - LOCAL SWELLING [None]
  - NAUSEA [None]
  - PALLOR [None]
  - POST PROCEDURAL COMPLICATION [None]
  - RECTAL HAEMORRHAGE [None]
  - THYROID DISORDER [None]
